FAERS Safety Report 12834795 (Version 1)
Quarter: 2016Q4

REPORT INFORMATION
  Report Type: Spontaneous
  Country: US (occurrence: US)
  Receive Date: 20161010
  Receipt Date: 20161010
  Transmission Date: 20170207
  Serious: No
  Sender: FDA-Public Use
  Company Number: US-PFIZER INC-2016469202

PATIENT
  Age: 53 Year
  Sex: Female
  Weight: 79 kg

DRUGS (2)
  1. GABAPENTIN. [Suspect]
     Active Substance: GABAPENTIN
     Indication: NEUROPATHY PERIPHERAL
     Dosage: 100 MG 1 TO 2 CAPSULES DAILY
     Route: 048
     Dates: start: 20160330, end: 201606
  2. GABAPENTIN. [Suspect]
     Active Substance: GABAPENTIN
     Indication: HERPES ZOSTER
     Dosage: 100MG 3 - 4 CAPSULES DAILY
     Route: 048
     Dates: start: 201608, end: 20161003

REACTIONS (18)
  - Balance disorder [Unknown]
  - Paraesthesia [Unknown]
  - Anger [Unknown]
  - Nervousness [Unknown]
  - Speech disorder [Unknown]
  - Tremor [Unknown]
  - Insomnia [Unknown]
  - Tachyphrenia [Unknown]
  - Formication [Unknown]
  - Drug ineffective [Unknown]
  - Confusional state [Unknown]
  - Pruritus [Unknown]
  - Restlessness [Unknown]
  - Coordination abnormal [Unknown]
  - Anxiety [Unknown]
  - Memory impairment [Unknown]
  - Headache [Unknown]
  - Muscle twitching [Unknown]
